FAERS Safety Report 7141408-3 (Version None)
Quarter: 2010Q4

REPORT INFORMATION
  Report Type: 
  Country: None (occurrence: None)
  Receive Date: 20101203
  Receipt Date: 20101203
  Transmission Date: 20110411
  Serious: Yes (Hospitalization)
  Sender: FDA-Public Use
  Company Number: None

PATIENT
  Sex: Female
  Weight: 69.2 kg

DRUGS (2)
  1. CARBOPLATIN [Suspect]
     Dates: end: 20101119
  2. TAXOL [Suspect]
     Dates: end: 20101119

REACTIONS (9)
  - BACILLUS INFECTION [None]
  - BACTERIAL INFECTION [None]
  - CULTURE POSITIVE [None]
  - DIARRHOEA [None]
  - MALAISE [None]
  - NAUSEA [None]
  - PELVIC ABSCESS [None]
  - STREPTOCOCCUS TEST POSITIVE [None]
  - VAGINAL DISCHARGE [None]
